FAERS Safety Report 14623317 (Version 3)
Quarter: 2020Q1

REPORT INFORMATION
  Report Type: Spontaneous
  Country: BR (occurrence: BR)
  Receive Date: 20180312
  Receipt Date: 20200111
  Transmission Date: 20200409
  Serious: Yes (Hospitalization, Other)
  Sender: FDA-Public Use
  Company Number: BR-AMGEN-BRASP2018032575

PATIENT
  Age: 74 Year
  Sex: Female
  Weight: 65 kg

DRUGS (1)
  1. ENBREL [Suspect]
     Active Substance: ETANERCEPT
     Indication: RHEUMATOID ARTHRITIS
     Dosage: UNK, WEEKLY
     Route: 065
     Dates: start: 20181201, end: 201906

REACTIONS (2)
  - Bladder prolapse [Unknown]
  - Pneumonia fungal [Not Recovered/Not Resolved]

NARRATIVE: CASE EVENT DATE: 201911
